FAERS Safety Report 5278408-4 (Version None)
Quarter: 2007Q1

REPORT INFORMATION
  Report Type: 
  Country: None (occurrence: None)
  Receive Date: 20061213
  Receipt Date: 20050627
  Transmission Date: 20070707
  Serious: Yes (Hospitalization)
  Sender: FDA-Public Use
  Company Number: 2005UW09767

PATIENT
  Age: 28 Year
  Sex: Male

DRUGS (4)
  1. SEROQUEL [Suspect]
     Dosage: SEE IMAGE
  2. TRAZODONE HCL [Suspect]
     Indication: SEDATION
  3. DEPAKOTE [Concomitant]
  4. ONE OR TWO OTHER AGENTS [Concomitant]

REACTIONS (2)
  - MANIA [None]
  - OEDEMA PERIPHERAL [None]
